FAERS Safety Report 19810647 (Version 1)
Quarter: 2021Q3

REPORT INFORMATION
  Report Type: Spontaneous
  Country: FR (occurrence: FR)
  Receive Date: 20210909
  Receipt Date: 20210909
  Transmission Date: 20211014
  Serious: Yes (Hospitalization)
  Sender: FDA-Public Use
  Company Number: FR-MYLANLABS-2021M1060350

PATIENT
  Age: 64 Year
  Sex: Female

DRUGS (7)
  1. PROCARBAZINE [Concomitant]
     Active Substance: PROCARBAZINE
     Indication: B-CELL LYMPHOMA
  2. RITUXIMAB. [Concomitant]
     Active Substance: RITUXIMAB
     Indication: B-CELL LYMPHOMA
  3. VINCRISTINE [Concomitant]
     Active Substance: VINCRISTINE
     Indication: CENTRAL NERVOUS SYSTEM LYMPHOMA
     Dosage: UNK UNK, CYCLE
     Route: 065
  4. PROCARBAZINE [Concomitant]
     Active Substance: PROCARBAZINE
     Indication: CENTRAL NERVOUS SYSTEM LYMPHOMA
     Dosage: UNK UNK, CYCLE
     Route: 065
  5. METHOTREXATE. [Suspect]
     Active Substance: METHOTREXATE
     Indication: CENTRAL NERVOUS SYSTEM LYMPHOMA
     Dosage: 100 MILLIGRAM/SQ. METER, CYCLE
  6. RITUXIMAB. [Concomitant]
     Active Substance: RITUXIMAB
     Indication: CENTRAL NERVOUS SYSTEM LYMPHOMA
     Dosage: UNK UNK, CYCLE
     Route: 065
  7. VINCRISTINE [Concomitant]
     Active Substance: VINCRISTINE
     Indication: B-CELL LYMPHOMA

REACTIONS (5)
  - Anaemia [Recovering/Resolving]
  - Mucosal inflammation [Unknown]
  - Sepsis [Recovered/Resolved]
  - Overdose [Unknown]
  - Drug level increased [Unknown]
